FAERS Safety Report 7118393-3 (Version None)
Quarter: 2010Q4

REPORT INFORMATION
  Report Type: 
  Country: None (occurrence: None)
  Receive Date: 20101123
  Receipt Date: 20101111
  Transmission Date: 20110411
  Serious: Yes (Other)
  Sender: FDA-Public Use
  Company Number: PHEH2009US01934

PATIENT
  Sex: Female

DRUGS (26)
  1. SANDOSTATIN LAR [Suspect]
     Dosage: 60 MG, UNK
     Dates: start: 20030101
  2. SANDOSTATIN LAR [Suspect]
     Dosage: 50 MG, UNK
     Dates: end: 20081101
  3. SANDOSTATIN LAR [Suspect]
     Dosage: UNK
  4. SANDOSTATIN [Suspect]
     Dosage: UNK
     Dates: start: 20020101
  5. LANREOTIDE [Suspect]
     Dosage: 120 MG, UNK
     Dates: start: 20081101
  6. ALLEGRA [Concomitant]
     Dosage: 180 MG, UNK
  7. METFORMIN HCL [Concomitant]
  8. NORVASC [Concomitant]
  9. ZYRTEC [Concomitant]
  10. PEPCID [Concomitant]
  11. SYNTHROID [Concomitant]
  12. COZAAR [Concomitant]
  13. ZELCOR [Concomitant]
  14. NOVOLIN N [Concomitant]
  15. NOVOLIN R [Concomitant]
  16. VITAMIN B-12 [Concomitant]
  17. TESSALON [Concomitant]
  18. ANALPRAM HC [Concomitant]
  19. NORTRIPTYLINE HCL [Concomitant]
  20. ATARAX [Concomitant]
  21. PERIACTIN [Concomitant]
  22. TRIAMCINOLONE ACETONIDE [Concomitant]
  23. PANCREAZE [Concomitant]
  24. ASCORBIC ACID [Concomitant]
  25. VITAMIN E [Concomitant]
  26. FISH OIL [Concomitant]

REACTIONS (12)
  - BLOOD GLUCOSE INCREASED [None]
  - DIARRHOEA [None]
  - FLUSHING [None]
  - HEART RATE IRREGULAR [None]
  - INCORRECT DOSE ADMINISTERED [None]
  - LIVER DISORDER [None]
  - MASS [None]
  - MOBILITY DECREASED [None]
  - MYALGIA [None]
  - PRODUCT QUALITY ISSUE [None]
  - SCAR [None]
  - TRANSAMINASES INCREASED [None]
